FAERS Safety Report 20837495 (Version 1)
Quarter: 2022Q2

REPORT INFORMATION
  Report Type: Spontaneous
  Country: US (occurrence: US)
  Receive Date: 20220517
  Receipt Date: 20220517
  Transmission Date: 20220720
  Serious: No
  Sender: FDA-Public Use
  Company Number: US-ELI_LILLY_AND_COMPANY-US202205006403

PATIENT
  Sex: Female

DRUGS (2)
  1. HUMALOG MIX75/25 [Suspect]
     Active Substance: INSULIN LISPRO
     Indication: Type 2 diabetes mellitus
     Dosage: 60 U, DAILY
     Route: 058
     Dates: start: 2016
  2. HUMALOG MIX75/25 [Suspect]
     Active Substance: INSULIN LISPRO
     Dosage: 58 U, PRN
     Route: 058

REACTIONS (6)
  - Headache [Unknown]
  - Nausea [Unknown]
  - Fatigue [Unknown]
  - Nasal congestion [Unknown]
  - Hypersensitivity [Unknown]
  - Wrong technique in product usage process [Unknown]
